FAERS Safety Report 6856343-5 (Version None)
Quarter: 2010Q3

REPORT INFORMATION
  Report Type: 
  Country: None (occurrence: None)
  Receive Date: 20100715
  Receipt Date: 20100715
  Transmission Date: 20110219
  Serious: No
  Sender: FDA-Public Use
  Company Number: None

PATIENT
  Age: 25 Year
  Sex: Female
  Weight: 60.782 kg

DRUGS (1)
  1. KLOR-CON [Suspect]
     Indication: FAMILIAL PERIODIC PARALYSIS
     Dosage: 25-50 MEQ AS NEEDED PO - ONLY USED ONCE
     Route: 048
     Dates: start: 20100714

REACTIONS (4)
  - ABDOMINAL PAIN UPPER [None]
  - DIARRHOEA [None]
  - NAUSEA [None]
  - PRODUCT FORMULATION ISSUE [None]
